FAERS Safety Report 13739370 (Version 2)
Quarter: 2017Q3

REPORT INFORMATION
  Report Type: Report from Study
  Country: CA (occurrence: CA)
  Receive Date: 20170710
  Receipt Date: 20170803
  Transmission Date: 20171127
  Serious: Yes (Death, Hospitalization)
  Sender: FDA-Public Use
  Company Number: CA-HLSUS-2017-CA-000600

PATIENT
  Age: 57 Year
  Sex: Female

DRUGS (23)
  1. MELATONIN [Concomitant]
     Active Substance: MELATONIN
     Dosage: 12 MG ONCE DAILY
     Route: 048
  2. VALPORIC ACID [Concomitant]
     Active Substance: VALPROIC ACID
     Dosage: 500MG AT 8 AM AND 5 PM
     Route: 048
     Dates: start: 20170410, end: 20170626
  3. ATORVASTATIN [Concomitant]
     Active Substance: ATORVASTATIN
     Dosage: 10 MG AT BED TIME
     Route: 048
  4. ACETAMINOPHEN. [Concomitant]
     Active Substance: ACETAMINOPHEN
     Dosage: 975 MG BID AND BEDTIME
     Route: 065
  5. POLYETHYLENE GLYCOL [Concomitant]
     Active Substance: POLYETHYLENE GLYCOLS
     Dosage: 17 G BID
     Route: 048
  6. VITAMIN D [Concomitant]
     Active Substance: CHOLECALCIFEROL
     Dosage: 2000 INTERNATIONAL UNITS QAM
     Route: 048
  7. SITAGLIPTIN [Concomitant]
     Active Substance: SITAGLIPTIN
     Dosage: 50 MG QAM
     Route: 048
  8. MILK OF MAGNESIA [Concomitant]
     Active Substance: MAGNESIUM HYDROXIDE
     Dosage: 20 ML QID WHEN NECESSARY
  9. SENOKOT [Concomitant]
     Active Substance: SENNOSIDES
     Dosage: 2 TABLETS BID
     Route: 048
  10. A535 [Concomitant]
     Dosage: QID WHEN NECESSARY
     Route: 061
  11. LACTULOSE. [Concomitant]
     Active Substance: LACTULOSE
     Dosage: 30 ML QAM
     Route: 048
  12. CALCIUM CARBONATE. [Concomitant]
     Active Substance: CALCIUM CARBONATE
     Dosage: 1250 MG TID
     Route: 048
  13. METHYLCELLULOSE [Concomitant]
     Active Substance: METHYLCELLULOSES
     Dosage: 1-2 DROPS IN BOTH EYE WHEN NECESSARY
     Route: 047
  14. SALBUTAMOL [Concomitant]
     Active Substance: ALBUTEROL
     Dosage: 100 MCG 2 PUFF WVWRY 4 HOUR WHEN NECESSARY
  15. CLONIDINE. [Concomitant]
     Active Substance: CLONIDINE
     Dosage: 0.1 MG BID
     Dates: end: 20170624
  16. BACLOFEN. [Concomitant]
     Active Substance: BACLOFEN
     Dosage: 5 MG BID
     Route: 046
  17. METFORMIN [Concomitant]
     Active Substance: METFORMIN HYDROCHLORIDE
     Dosage: 500 MG X 2 TABLET TWICE DAILY
     Route: 048
     Dates: start: 20160407
  18. POLYSPORIN [Concomitant]
     Active Substance: BACITRACIN ZINC\POLYMYXIN B SULFATE
     Dosage: WHEN NECESSARY
     Route: 065
  19. RISEDRONATE [Concomitant]
     Active Substance: RISEDRONATE SODIUM
     Dosage: 35 MG EVERY WEEK
     Route: 048
  20. CLOZARIL [Suspect]
     Active Substance: CLOZAPINE
     Dosage: 400 MG DAILY BEDTIME
     Dates: start: 20160404, end: 20170626
  21. IBUPROFEN. [Concomitant]
     Active Substance: IBUPROFEN
     Dosage: 200 MG BID AND BEDTIIME
     Route: 065
  22. FLEET ENEMA [Concomitant]
     Active Substance: SODIUM PHOSPHATE, DIBASIC\SODIUM PHOSPHATE, MONOBASIC
     Dosage: WHEN NECESSARY
     Route: 065
  23. ATROPIN [Concomitant]
     Active Substance: ATROPINE
     Dosage: 2 DROPS TWICE DAILY
     Route: 060

REACTIONS (10)
  - Refusal of treatment by patient [Not Recovered/Not Resolved]
  - Hypophagia [Unknown]
  - Decubitus ulcer [Unknown]
  - Weight decreased [Unknown]
  - Agitation [Unknown]
  - Progressive supranuclear palsy [Fatal]
  - Restlessness [Unknown]
  - Fall [Unknown]
  - Pulmonary embolism [Fatal]
  - Dysarthria [Unknown]

NARRATIVE: CASE EVENT DATE: 201607
